FAERS Safety Report 6389403-6 (Version None)
Quarter: 2009Q4

REPORT INFORMATION
  Report Type: 
  Country: None (occurrence: None)
  Receive Date: 20091006
  Receipt Date: 20090924
  Transmission Date: 20100525
  Serious: Yes (Other)
  Sender: FDA-Public Use
  Company Number: US-JNJFOC-20090907947

PATIENT
  Age: 5 Year
  Sex: Female
  Weight: 19.5 kg

DRUGS (4)
  1. TYLENOL (CAPLET) [Suspect]
     Route: 048
  2. TYLENOL (CAPLET) [Suspect]
     Indication: PYREXIA
     Dosage: 320 MG 3-4 TIMES/DAY
     Route: 048
  3. CHILDREN'S MOTRIN [Concomitant]
     Indication: PYREXIA
     Dosage: 200 MG 2-4 TIMES A DAY
  4. ALBUTEROL [Concomitant]
     Indication: ASTHMA
     Dosage: 25 MG TWICE A DAY AS NEEDED

REACTIONS (2)
  - EPISTAXIS [None]
  - TRANSMISSION OF AN INFECTIOUS AGENT VIA A MEDICINAL PRODUCT [None]
